FAERS Safety Report 22159017 (Version 2)
Quarter: 2023Q2

REPORT INFORMATION
  Report Type: Spontaneous
  Country: US (occurrence: US)
  Receive Date: 20230331
  Receipt Date: 20230620
  Transmission Date: 20230721
  Serious: No
  Sender: FDA-Public Use
  Company Number: US-SA-SAC20230330000185

PATIENT
  Age: 52 Year
  Sex: Female
  Weight: 68 kg

DRUGS (25)
  1. DUPIXENT [Suspect]
     Active Substance: DUPILUMAB
     Indication: Dermatitis atopic
     Dosage: 300 MG, QOW
     Route: 058
     Dates: start: 20220821
  2. ALLEGRA ALLERGY [Concomitant]
     Active Substance: FEXOFENADINE HYDROCHLORIDE
  3. ASPIRIN [Concomitant]
     Active Substance: ASPIRIN
  4. CALCIUM [Concomitant]
     Active Substance: CALCIUM
  5. COENZYME Q10 [Concomitant]
     Active Substance: DIETARY SUPPLEMENT\UBIDECARENONE
  6. MAGNESIUM [Concomitant]
     Active Substance: MAGNESIUM
  7. FISH OIL [Concomitant]
     Active Substance: FISH OIL
  8. FLUOCINOLONE ACETONIDE [Concomitant]
     Active Substance: FLUOCINOLONE ACETONIDE
  9. GABAPENTIN [Concomitant]
     Active Substance: GABAPENTIN
  10. MELATONIN [Concomitant]
     Active Substance: MELATONIN
  11. POTASSIUM GLUCONATE [Concomitant]
     Active Substance: POTASSIUM GLUCONATE
  12. OMEPRAZOLE [Concomitant]
     Active Substance: OMEPRAZOLE
  13. VITAMIN B COMPLEX [Concomitant]
     Active Substance: CYANOCOBALAMIN\DEXPANTHENOL\NIACINAMIDE\PYRIDOXINE HYDROCHLORIDE\RIBOFLAVIN 5^-PHOSPHATE SODIUM\THIA
  14. VITAMIN C [Concomitant]
     Active Substance: ASCORBIC ACID
  15. VITAMIN D3 [Concomitant]
     Active Substance: CHOLECALCIFEROL
  16. CYANOCOBALAMIN [Concomitant]
     Active Substance: CYANOCOBALAMIN
  17. PREGABALIN [Concomitant]
     Active Substance: PREGABALIN
  18. CELECOXIB [Concomitant]
     Active Substance: CELECOXIB
  19. TIZANIDINE HYDROCHLORIDE [Concomitant]
     Active Substance: TIZANIDINE HYDROCHLORIDE
  20. VENLAFAXINE HCL [Concomitant]
     Active Substance: VENLAFAXINE HYDROCHLORIDE
  21. TAMOXIFEN CITRATE [Concomitant]
     Active Substance: TAMOXIFEN CITRATE
  22. AMITRIPTYLINE HYDROCHLORIDE [Concomitant]
     Active Substance: AMITRIPTYLINE HYDROCHLORIDE
  23. CYCLOBENZAPRINE HYDROCHLORIDE [Concomitant]
     Active Substance: CYCLOBENZAPRINE HYDROCHLORIDE
  24. KETOROLAC TROMETHAMINE [Concomitant]
     Active Substance: KETOROLAC TROMETHAMINE
  25. OMEGA-3 FATTY ACIDS [Concomitant]
     Active Substance: OMEGA-3 FATTY ACIDS

REACTIONS (12)
  - Foot fracture [Unknown]
  - COVID-19 [Unknown]
  - Fall [Unknown]
  - Coccydynia [Not Recovered/Not Resolved]
  - Condition aggravated [Not Recovered/Not Resolved]
  - Weight increased [Unknown]
  - Skin discolouration [Unknown]
  - Skin papilloma [Unknown]
  - Dry skin [Unknown]
  - Pruritus [Unknown]
  - Product dose omission issue [Unknown]
  - Rash macular [Unknown]

NARRATIVE: CASE EVENT DATE: 20220101
